FAERS Safety Report 4436847-5 (Version None)
Quarter: 2004Q3

REPORT INFORMATION
  Report Type: 
  Country: None (occurrence: None)
  Receive Date: 20040830
  Receipt Date: 20040712
  Transmission Date: 20050211
  Serious: Yes (Other)
  Sender: FDA-Public Use
  Company Number: US-ROCHE-374300

PATIENT
  Age: 37 Year
  Sex: Female

DRUGS (7)
  1. PEGASYS [Suspect]
     Indication: HEPATITIS C
     Route: 065
     Dates: start: 20040422
  2. COPEGUS [Suspect]
     Indication: HEPATITIS C
     Route: 065
     Dates: start: 20040422
  3. IBUPROFEN [Concomitant]
     Route: 065
  4. VALIUM [Concomitant]
     Route: 065
  5. DILANTIN [Concomitant]
  6. UNKNOWN MEDICATION [Concomitant]
     Dosage: DRUG REPORTED AS CARBITROL
  7. ATIVAN [Concomitant]

REACTIONS (7)
  - CONVULSION [None]
  - CONVULSIVE THRESHOLD LOWERED [None]
  - DIZZINESS [None]
  - FATIGUE [None]
  - GRAND MAL CONVULSION [None]
  - HEADACHE [None]
  - INSOMNIA [None]
